FAERS Safety Report 4439133-2 (Version None)
Quarter: 2004Q3

REPORT INFORMATION
  Report Type: 
  Country: None (occurrence: None)
  Receive Date: 20040831
  Receipt Date: 20040820
  Transmission Date: 20050211
  Serious: Yes (Other)
  Sender: FDA-Public Use
  Company Number: 002448

PATIENT
  Sex: Female

DRUGS (6)
  1. MEDROXYPROGESTERONE ACETATE [Suspect]
  2. ESTRADIOL [Suspect]
  3. ESTRACE [Suspect]
  4. PROVERA [Concomitant]
  5. FEMHRT [Concomitant]
  6. PREMPRO [Suspect]

REACTIONS (1)
  - BREAST CANCER FEMALE [None]
